FAERS Safety Report 4365907-2 (Version None)
Quarter: 2004Q2

REPORT INFORMATION
  Report Type: 
  Country: None (occurrence: None)
  Receive Date: 20040524
  Receipt Date: 20040302
  Transmission Date: 20050107
  Serious: No
  Sender: FDA-Public Use
  Company Number: SU-2004-002190

PATIENT
  Age: 68 Year
  Sex: Female
  Weight: 51.7101 kg

DRUGS (10)
  1. BENICAR [Suspect]
     Indication: HYPERTENSION
     Dosage: 20 MG QD PO
     Route: 048
     Dates: start: 20021001, end: 20040301
  2. HYDROCHLOROTHIAZIDE [Concomitant]
  3. PREDNISONE [Concomitant]
  4. CARDIZEM [Concomitant]
  5. PREMARIN [Concomitant]
  6. ALBUTEROL [Concomitant]
  7. COMBIVENT [Concomitant]
  8. PEPCID AC [Concomitant]
  9. ZANTAC [Concomitant]
  10. PREMARIN [Concomitant]

REACTIONS (3)
  - ABDOMINAL PAIN [None]
  - CONDITION AGGRAVATED [None]
  - MUSCLE CRAMP [None]
